FAERS Safety Report 8144743-5 (Version None)
Quarter: 2012Q1

REPORT INFORMATION
  Report Type: 
  Country: None (occurrence: None)
  Receive Date: 20120217
  Receipt Date: 20120203
  Transmission Date: 20120608
  Serious: Yes (Disabling)
  Sender: FDA-Public Use
  Company Number: FR-CELGENEUS-056-21880-11110782

PATIENT
  Sex: Female

DRUGS (5)
  1. DOXORUBICIN HYDROCHLORIDE [Suspect]
     Indication: OVARIAN CANCER
     Dosage: 30 MILLIGRAM/SQ. METER
     Route: 065
     Dates: start: 20111019
  2. OXAZEPAM [Concomitant]
     Dosage: 10 MILLIGRAM
     Route: 065
  3. REVLIMID [Suspect]
     Indication: OVARIAN CANCER
     Dosage: 15 MILLIGRAM
     Route: 048
     Dates: start: 20111020, end: 20111103
  4. CARBOPLATIN [Suspect]
     Indication: OVARIAN CANCER
     Dosage: 475 MILLIGRAM
     Route: 065
     Dates: start: 20111019
  5. LAMOTRIGINE [Concomitant]
     Dosage: 200 MILLIGRAM
     Route: 065

REACTIONS (2)
  - VISUAL ACUITY REDUCED [None]
  - OPTIC NEURITIS [None]
